FAERS Safety Report 13085450 (Version 6)
Quarter: 2019Q1

REPORT INFORMATION
  Report Type: Spontaneous
  Country: US (occurrence: US)
  Receive Date: 20170104
  Receipt Date: 20190109
  Transmission Date: 20190417
  Serious: Yes (Hospitalization)
  Sender: FDA-Public Use
  Company Number: US-PFIZER INC-2016604471

PATIENT
  Age: 78 Year
  Sex: Female
  Weight: 78 kg

DRUGS (9)
  1. VFEND [Suspect]
     Active Substance: VORICONAZOLE
     Indication: PROPHYLAXIS
     Dosage: (STRENGTH 200MG) 1.5 TABLETS BY MOUTH TWICE A DAY
     Route: 048
  2. VFEND [Suspect]
     Active Substance: VORICONAZOLE
     Indication: CHRONIC LYMPHOCYTIC LEUKAEMIA
     Dosage: 4 DF, DAILY [200MG TABLETS; 2 TABLETS BY MOUTH TWICE DAILY, 2 IN THE MORNING AND 2 IN THE EVENING]
     Route: 048
  3. VFEND [Suspect]
     Active Substance: VORICONAZOLE
     Indication: PNEUMONIA
  4. THYROID [Concomitant]
     Active Substance: LEVOTHYROXINE\LIOTHYRONINE
     Dosage: 137 UG, DAILY
     Route: 048
  5. VFEND [Suspect]
     Active Substance: VORICONAZOLE
     Indication: CHRONIC OBSTRUCTIVE PULMONARY DISEASE
  6. VFEND [Suspect]
     Active Substance: VORICONAZOLE
     Indication: ASPERGILLUS INFECTION
     Dosage: 300 MG, 2X/DAY (TAKE ONE AND A HALF TABLETS TWICE DAILY)
     Route: 048
  7. SINGULAIR [Concomitant]
     Active Substance: MONTELUKAST SODIUM
     Indication: ASTHMA
     Dosage: 1 DF, 1X/DAY [IN THE EVENING]
     Route: 048
  8. VFEND [Suspect]
     Active Substance: VORICONAZOLE
     Indication: FUNGAL INFECTION
     Dosage: 200 MG, 2X/DAY
     Route: 048
     Dates: start: 2015
  9. VFEND [Suspect]
     Active Substance: VORICONAZOLE
     Indication: PNEUMONIA FUNGAL

REACTIONS (2)
  - Drug ineffective [Recovering/Resolving]
  - Product prescribing error [Unknown]

NARRATIVE: CASE EVENT DATE: 2018
